FAERS Safety Report 8902652 (Version 1)
Quarter: 2012Q4

REPORT INFORMATION
  Report Type: 
  Country: US (occurrence: US)
  Receive Date: 20121112
  Receipt Date: 20121112
  Transmission Date: 20130627
  Serious: Yes (Other)
  Sender: FDA-Public Use
  Company Number: US-PFIZER INC-2012277955

PATIENT
  Age: 77 Year
  Sex: Male
  Weight: 72.56 kg

DRUGS (1)
  1. REVATIO [Suspect]
     Dosage: 20 mg, 3x/day
     Route: 048
     Dates: start: 20120823

REACTIONS (3)
  - Bone marrow disorder [Unknown]
  - Full blood count decreased [Unknown]
  - Gastrointestinal fungal infection [Not Recovered/Not Resolved]
